FAERS Safety Report 7347533-6 (Version None)
Quarter: 2011Q1

REPORT INFORMATION
  Report Type: 
  Country: None (occurrence: None)
  Receive Date: 20110302
  Receipt Date: 20110223
  Transmission Date: 20110831
  Serious: Yes (Death)
  Sender: FDA-Public Use
  Company Number: UTKAB-11-0155

PATIENT
  Sex: Female
  Weight: 80.6 kg

DRUGS (6)
  1. DEXAMETHASONE [Concomitant]
  2. ONDANSETRON [Concomitant]
  3. RANITIDINE [Concomitant]
  4. ABRAXANE [Suspect]
     Indication: CERVIX CARCINOMA
  5. CISPLATIN [Concomitant]
  6. CHLORPHENIRAMINE MALEATE [Concomitant]

REACTIONS (1)
  - DEATH [None]
